FAERS Safety Report 8922782 (Version 3)
Quarter: 2013Q1

REPORT INFORMATION
  Report Type: Spontaneous
  Country: US (occurrence: None)
  Receive Date: 20121115
  Receipt Date: 20121231
  Transmission Date: 20140127
  Serious: Yes (Hospitalization, Other)
  Sender: FDA-Public Use
  Company Number: JPI-P-026051

PATIENT
  Age: 40 Year
  Sex: Female
  Weight: 104.78 kg

DRUGS (8)
  1. XYREM [Suspect]
     Indication: NARCOLEPSY
     Dosage: 4.5 GM (2.25 GM, 2 IN 1 D), ORAL
     Dates: start: 20030923
  2. XYREM [Suspect]
     Indication: SOMNOLENCE
     Route: 048
  3. PREGABALIN [Concomitant]
  4. DULOXETINE HYDROCHLORIDE [Concomitant]
  5. METFORMIN [Concomitant]
  6. SPIRONOLACTONE [Concomitant]
  7. NORGESTIMATE AND ETHINYL ESTRADIOL [Concomitant]
  8. TOPIRAMATE [Concomitant]

REACTIONS (5)
  - Acute promyelocytic leukaemia [None]
  - Faecal incontinence [None]
  - Delusion [None]
  - Insomnia [None]
  - Diarrhoea [None]
